FAERS Safety Report 19985842 (Version 1)
Quarter: 2021Q4

REPORT INFORMATION
  Report Type: Report from Study
  Country: UG (occurrence: UG)
  Receive Date: 20211022
  Receipt Date: 20211022
  Transmission Date: 20220303
  Serious: Yes (Death, Other)
  Sender: FDA-Public Use
  Company Number: UG-GILEAD-2021-0553484

PATIENT
  Sex: Male
  Weight: 3.5 kg

DRUGS (1)
  1. EMTRICITABINE\TENOFOVIR DISOPROXIL FUMARATE [Suspect]
     Active Substance: EMTRICITABINE\TENOFOVIR DISOPROXIL FUMARATE
     Indication: Prophylaxis against HIV infection
     Dosage: UNK
     Route: 064
     Dates: start: 20191016, end: 20201209

REACTIONS (2)
  - Foetal distress syndrome [Fatal]
  - Foetal exposure during pregnancy [Recovered/Resolved]
